FAERS Safety Report 13456254 (Version 3)
Quarter: 2017Q3

REPORT INFORMATION
  Report Type: Spontaneous
  Country: DE (occurrence: DE)
  Receive Date: 20170418
  Receipt Date: 20170913
  Transmission Date: 20171127
  Serious: Yes (Other)
  Sender: FDA-Public Use
  Company Number: DE-ALLERGAN-1714869US

PATIENT
  Age: 71 Year
  Sex: Male

DRUGS (1)
  1. LUMIGAN [Suspect]
     Active Substance: BIMATOPROST
     Indication: INTRAOCULAR PRESSURE INCREASED
     Dosage: 1 GTT, QPM
     Route: 047
     Dates: start: 20131014

REACTIONS (3)
  - Basal cell carcinoma [Unknown]
  - Arthralgia [Unknown]
  - Pigmentation disorder [Unknown]

NARRATIVE: CASE EVENT DATE: 20161205
